FAERS Safety Report 22526503 (Version 1)
Quarter: 2023Q2

REPORT INFORMATION
  Report Type: Spontaneous
  Country: US (occurrence: None)
  Receive Date: 20230605
  Receipt Date: 20230605
  Transmission Date: 20230722
  Serious: Yes (Hospitalization)
  Sender: FDA-Public Use
  Company Number: None

PATIENT
  Sex: Male

DRUGS (16)
  1. NUCALA [Suspect]
     Active Substance: MEPOLIZUMAB
     Indication: Asthma
     Dosage: FREQUENCY : MONTHLY;?
     Route: 058
     Dates: start: 20220623
  2. ALBUTEROL AER HFA [Concomitant]
  3. AZELASTINE SPR [Concomitant]
  4. EZETIMIBE TAB [Concomitant]
  5. FLONASE SPR [Concomitant]
  6. IRBESARTAN [Concomitant]
     Active Substance: IRBESARTAN
  7. METFORMIN SOL [Concomitant]
  8. MONTELUKAST [Concomitant]
  9. OMEPRAZOLE [Concomitant]
     Active Substance: OMEPRAZOLE
  10. OZEMPIC [Concomitant]
     Active Substance: SEMAGLUTIDE
  11. ROSUVASTATIN [Concomitant]
     Active Substance: ROSUVASTATIN
  12. SPIRIVA AER [Concomitant]
  13. SYMBICORT AER 80-4.5 [Concomitant]
  14. TAMSULOSIN [Concomitant]
     Active Substance: TAMSULOSIN
  15. VITAMIN C [Concomitant]
     Active Substance: ASCORBIC ACID
  16. ZYRTEC ALLGY [Concomitant]

REACTIONS (1)
  - Hospitalisation [None]
